FAERS Safety Report 8241131-8 (Version None)
Quarter: 2012Q1

REPORT INFORMATION
  Report Type: 
  Country: None (occurrence: None)
  Receive Date: 20120328
  Receipt Date: 20120316
  Transmission Date: 20120608
  Serious: Yes (Hospitalization, Other)
  Sender: FDA-Public Use
  Company Number: GB-BRISTOL-MYERS SQUIBB COMPANY-16145534

PATIENT
  Age: 54 Year
  Sex: Male

DRUGS (11)
  1. EXENATIDE [Suspect]
     Dosage: DOSE INCREASED TO 10UG, 2X/DAY AFTER FOUR HOURS. 10MCG,2 IN 1 DAY 5MCG ,2 IN 1 DAY10 MCG 2 IN 1 D
     Route: 065
  2. CANDESARTAN CILEXETIL [Suspect]
     Dosage: LATER 5 MCG
  3. METFORMIN HCL [Suspect]
     Dosage: INTER AND RESTARTED
     Route: 065
  4. ASPIRIN [Suspect]
     Route: 065
  5. QUININE SULFATE [Suspect]
     Route: 065
  6. LEVOTHYROXINE SODIUM [Suspect]
     Route: 065
  7. PREGABALIN [Suspect]
     Route: 065
  8. INSULIN GLARGINE [Suspect]
     Dosage: 1DF:116 UNITS
     Route: 065
  9. AMITRIPTYLINE HCL [Suspect]
     Route: 065
  10. GLICLAZIDE [Suspect]
     Route: 065
  11. ROSUVASTATIN [Suspect]
     Route: 065

REACTIONS (4)
  - BODY MASS INDEX DECREASED [None]
  - MALAISE [None]
  - RENAL FAILURE ACUTE [None]
  - GASTROINTESTINAL DISORDER [None]
